FAERS Safety Report 25410579 (Version 1)
Quarter: 2025Q2

REPORT INFORMATION
  Report Type: Report from Study
  Country: US (occurrence: US)
  Receive Date: 20250608
  Receipt Date: 20250608
  Transmission Date: 20250717
  Serious: Yes (Other)
  Sender: UCB
  Company Number: US-UCBSA-2025033871

PATIENT
  Sex: Female

DRUGS (1)
  1. BRIVARACETAM [Suspect]
     Active Substance: BRIVARACETAM
     Indication: Seizure
     Dosage: 150 MILLIGRAM, 2X/DAY (BID), 50MG AND 100MG ONE TABLET EACH TWICE DAILY
     Route: 048
     Dates: end: 202505

REACTIONS (1)
  - Seizure [Unknown]
